FAERS Safety Report 14609843 (Version 1)
Quarter: 2018Q1

REPORT INFORMATION
  Report Type: Report from Study
  Country: SE (occurrence: SE)
  Receive Date: 20180307
  Receipt Date: 20180307
  Transmission Date: 20180509
  Serious: Yes (Other)
  Sender: FDA-Public Use
  Company Number: SE-TEVA-2018-SE-863150

PATIENT
  Age: 4 Year
  Sex: Female
  Weight: 13.7 kg

DRUGS (3)
  1. SALBUTAMOL SULPHATE NEBULISER SOLUTION [Suspect]
     Active Substance: ALBUTEROL SULFATE
     Indication: OBSTRUCTIVE AIRWAYS DISORDER
     Dosage: 1 MG/ML, UNK
     Dates: start: 20171017, end: 20171122
  2. PULMICORT TURBUHALER [Concomitant]
     Active Substance: BUDESONIDE
     Dosage: UNK
     Dates: end: 20171122
  3. CRIZOTINIB ORAL SOLUTION [Concomitant]
     Indication: NASOPHARYNGEAL CANCER
     Dosage: 165 MG, BID
     Route: 048
     Dates: start: 20171127, end: 20171206

REACTIONS (1)
  - Bradycardia [Recovered/Resolved]

NARRATIVE: CASE EVENT DATE: 20171125
